FAERS Safety Report 14334244 (Version 1)
Quarter: 2017Q4

REPORT INFORMATION
  Report Type: Spontaneous
  Country: FR (occurrence: FR)
  Receive Date: 20171228
  Receipt Date: 20171228
  Transmission Date: 20180321
  Serious: Yes (Hospitalization)
  Sender: FDA-Public Use
  Company Number: FR-PURDUE PHARMA-GBR-2017-0051856

PATIENT
  Age: 58 Year
  Sex: Male

DRUGS (7)
  1. DIAZEPAM. [Concomitant]
     Active Substance: DIAZEPAM
     Dosage: 20 MG, DAILY
  2. NON-PMN BUPRENORPHINE [Suspect]
     Active Substance: BUPRENORPHINE
     Indication: ANTISOCIAL PERSONALITY DISORDER
     Dosage: 8 UNK, UNK
     Route: 065
  3. NALTREXONE [Interacting]
     Active Substance: NALTREXONE
     Indication: PRODUCT USED FOR UNKNOWN INDICATION
     Dosage: 50 MG, SINGLE
     Route: 065
  4. NON-PMN BUPRENORPHINE [Interacting]
     Active Substance: BUPRENORPHINE
     Dosage: 16 MG, UNK
     Route: 065
  5. CANNABIS SATIVA [Suspect]
     Active Substance: CANNABIS SATIVA SUBSP. SATIVA FLOWERING TOP
     Indication: PRODUCT USED FOR UNKNOWN INDICATION
     Dosage: UNK, PRN
     Route: 055
  6. ESCITALOPRAM [Concomitant]
     Active Substance: ESCITALOPRAM OXALATE
     Dosage: 10 MG, DAILY
  7. ALCOHOL. [Suspect]
     Active Substance: ALCOHOL
     Indication: PRODUCT USED FOR UNKNOWN INDICATION
     Dosage: 20 DF, DAILY
     Route: 048

REACTIONS (2)
  - Drug interaction [Recovered/Resolved]
  - Drug withdrawal syndrome [Recovered/Resolved]
